FAERS Safety Report 5547264-9 (Version None)
Quarter: 2007Q4

REPORT INFORMATION
  Report Type: 
  Country: None (occurrence: None)
  Receive Date: 20071206
  Receipt Date: 20071130
  Transmission Date: 20080405
  Serious: Yes (Other)
  Sender: FDA-Public Use
  Company Number: 2007-05446

PATIENT
  Age: 45 Year
  Sex: Female

DRUGS (1)
  1. LEVORA 0.15/30-21 [Suspect]
     Indication: ORAL CONTRACEPTION
     Dosage: X 9 YEARS, ORAL
     Route: 048

REACTIONS (2)
  - HEPATIC LESION [None]
  - PELIOSIS HEPATIS [None]
